FAERS Safety Report 4487361-2 (Version None)
Quarter: 2004Q4

REPORT INFORMATION
  Report Type: 
  Country: None (occurrence: None)
  Receive Date: 20041022
  Receipt Date: 20041008
  Transmission Date: 20050328
  Serious: Yes (Hospitalization, Other)
  Sender: FDA-Public Use
  Company Number: STXI-2002-01264

PATIENT
  Age: 54 Year
  Sex: Male

DRUGS (1)
  1. PENTASA [Suspect]
     Indication: COLITIS ULCERATIVE
     Dosage: 4 G, ORAL
     Route: 048
     Dates: start: 20020201, end: 20021015

REACTIONS (3)
  - EPISTAXIS [None]
  - LYMPHOPENIA [None]
  - THROMBOCYTOPENIC PURPURA [None]
